FAERS Safety Report 5261878-5 (Version None)
Quarter: 2007Q1

REPORT INFORMATION
  Report Type: 
  Country: None (occurrence: None)
  Receive Date: 20070310
  Receipt Date: 20070228
  Transmission Date: 20070707
  Serious: Yes (Other)
  Sender: FDA-Public Use
  Company Number: 2006UW08165

PATIENT
  Age: 46 Year
  Sex: Male
  Weight: 100 kg

DRUGS (7)
  1. SEROQUEL [Suspect]
     Indication: SLEEP DISORDER
     Dosage: 300-50- MG. PO
     Dates: start: 19970101
  2. SEROQUEL [Suspect]
     Indication: BIPOLAR DISORDER
     Dosage: 300-50- MG. PO
     Dates: start: 19970101
  3. SEROQUEL [Suspect]
     Indication: DEPRESSION
     Dosage: 300-50- MG. PO
     Dates: start: 19970101
  4. ZYPREXA [Suspect]
     Dates: start: 20030101, end: 20050101
  5. LITHIUM CARBONATE [Suspect]
     Dates: start: 20030101, end: 20050101
  6. RISPERDAL [Concomitant]
  7. DEXATRIM [Concomitant]
     Dates: start: 20020101, end: 20050101

REACTIONS (8)
  - DIABETES MELLITUS [None]
  - DIABETIC COMA [None]
  - DIABETIC KETOACIDOSIS [None]
  - DIABETIC NEUROPATHY [None]
  - INJURY [None]
  - NEUROLEPTIC MALIGNANT SYNDROME [None]
  - RESTLESS LEGS SYNDROME [None]
  - TARDIVE DYSKINESIA [None]
